FAERS Safety Report 10046940 (Version 1)
Quarter: 2014Q1

REPORT INFORMATION
  Report Type: Spontaneous
  Country: US (occurrence: US)
  Receive Date: 20140331
  Receipt Date: 20140331
  Transmission Date: 20141002
  Serious: Yes (Death, Hospitalization)
  Sender: FDA-Public Use
  Company Number: US-MYLANLABS-2014S1006530

PATIENT
  Age: 39 Year
  Sex: Male

DRUGS (8)
  1. AZITHROMYCIN [Suspect]
     Indication: OPPORTUNISTIC INFECTION PROPHYLAXIS
     Route: 065
  2. DAPSONE [Suspect]
     Indication: OPPORTUNISTIC INFECTION PROPHYLAXIS
     Route: 065
  3. ETHAMBUTOL [Suspect]
     Indication: OPPORTUNISTIC INFECTION PROPHYLAXIS
     Route: 065
  4. VALPROATE SEMISODIUM [Suspect]
     Indication: CONVULSION
     Route: 065
  5. TENOFOVIR [Concomitant]
     Indication: HIV INFECTION
     Route: 065
  6. EMTRICITABINE [Concomitant]
     Indication: HIV INFECTION
     Route: 065
  7. KALETRA                            /01506501/ [Concomitant]
     Indication: HIV INFECTION
     Route: 065
  8. CEFEPIME [Concomitant]
     Indication: PNEUMONIA
     Route: 065

REACTIONS (4)
  - Vanishing bile duct syndrome [Unknown]
  - Confusional state [Unknown]
  - Multi-organ failure [Fatal]
  - Pancytopenia [Unknown]
